FAERS Safety Report 17559560 (Version 1)
Quarter: 2020Q1

REPORT INFORMATION
  Report Type: Spontaneous
  Country: ES (occurrence: ES)
  Receive Date: 20200319
  Receipt Date: 20200319
  Transmission Date: 20200409
  Serious: Yes (Other)
  Sender: FDA-Public Use
  Company Number: ES-AUROBINDO-AUR-APL-2020-014271

PATIENT
  Age: 44 Year
  Sex: Male

DRUGS (10)
  1. FENTANYL. [Concomitant]
     Active Substance: FENTANYL
     Indication: PRODUCT USED FOR UNKNOWN INDICATION
     Dosage: 25 MICROGRAM, EVERY HOUR
     Route: 062
  2. AMLODIPINE [Concomitant]
     Active Substance: AMLODIPINE BESYLATE
     Indication: THROMBOANGIITIS OBLITERANS
  3. TRAMADOL. [Concomitant]
     Active Substance: TRAMADOL
     Indication: THROMBOANGIITIS OBLITERANS
     Dosage: UNK
     Route: 065
  4. BOSENTAN. [Concomitant]
     Active Substance: BOSENTAN
     Indication: THROMBOANGIITIS OBLITERANS
     Dosage: 62.5 MILLIGRAM, TWO TIMES A DAY
     Route: 065
  5. ENOXAPARIN [Concomitant]
     Active Substance: ENOXAPARIN
     Indication: PRODUCT USED FOR UNKNOWN INDICATION
     Dosage: 40 MILLIGRAM, ONCE A DAY
     Route: 058
  6. AMLODIPINE [Concomitant]
     Active Substance: AMLODIPINE BESYLATE
     Indication: RAYNAUD^S PHENOMENON
     Dosage: 5 MILLIGRAM, ONCE A DAY
     Route: 065
  7. ALPROSTADIL. [Concomitant]
     Active Substance: ALPROSTADIL
     Indication: PRODUCT USED FOR UNKNOWN INDICATION
     Dosage: UNK
     Route: 042
  8. PARACETAMOL [Concomitant]
     Active Substance: ACETAMINOPHEN
     Indication: ANALGESIC THERAPY
     Dosage: 1 DOSAGE FORM, 3 TIMES A DAY (323/37.5 MG)
     Route: 065
  9. ADIRO [Concomitant]
     Active Substance: ASPIRIN
     Indication: PRODUCT USED FOR UNKNOWN INDICATION
     Dosage: 100 MILLIGRAM, ONCE A DAY
     Route: 065
  10. OMEPRAZOLE. [Suspect]
     Active Substance: OMEPRAZOLE
     Indication: PRODUCT USED FOR UNKNOWN INDICATION
     Dosage: 20 MILLIGRAM, ONCE A DAY
     Route: 065

REACTIONS (2)
  - Thromboangiitis obliterans [Unknown]
  - Condition aggravated [Unknown]
